FAERS Safety Report 5386600-3 (Version None)
Quarter: 2007Q3

REPORT INFORMATION
  Report Type: 
  Country: None (occurrence: None)
  Receive Date: 20070713
  Receipt Date: 20070711
  Transmission Date: 20080115
  Serious: Yes (Other)
  Sender: FDA-Public Use
  Company Number: D0053957A

PATIENT
  Sex: Male

DRUGS (1)
  1. ELONTRIL [Suspect]
     Route: 048
     Dates: start: 20070101

REACTIONS (1)
  - ASTHMA [None]
